FAERS Safety Report 14488284 (Version 1)
Quarter: 2018Q1

REPORT INFORMATION
  Report Type: Spontaneous
  Country: CA (occurrence: CA)
  Receive Date: 20180205
  Receipt Date: 20180205
  Transmission Date: 20180509
  Serious: Yes (Hospitalization, Other)
  Sender: FDA-Public Use
  Company Number: CA-PFIZER INC-2018043028

PATIENT
  Age: 21 Year
  Sex: Female

DRUGS (1)
  1. DEPO-PROVERA [Suspect]
     Active Substance: MEDROXYPROGESTERONE ACETATE
     Dosage: UNK
     Dates: start: 201712

REACTIONS (5)
  - Progesterone increased [Unknown]
  - Dysmenorrhoea [Unknown]
  - Malaise [Unknown]
  - Menometrorrhagia [Not Recovered/Not Resolved]
  - Decidual cast [Unknown]

NARRATIVE: CASE EVENT DATE: 20180128
